FAERS Safety Report 13534252 (Version 3)
Quarter: 2017Q3

REPORT INFORMATION
  Report Type: Spontaneous
  Country: US (occurrence: US)
  Receive Date: 20170510
  Receipt Date: 20170721
  Transmission Date: 20171127
  Serious: No
  Sender: FDA-Public Use
  Company Number: US-ASTRAZENECA-2017SE44234

PATIENT
  Sex: Male
  Weight: 109.8 kg

DRUGS (1)
  1. BYDUREON [Suspect]
     Active Substance: EXENATIDE
     Indication: TYPE 2 DIABETES MELLITUS
     Route: 058
     Dates: end: 20170710

REACTIONS (10)
  - Blood glucose abnormal [Unknown]
  - Product packaging issue [Not Recovered/Not Resolved]
  - Intentional product misuse [Unknown]
  - Circumstance or information capable of leading to medication error [Unknown]
  - Drug dose omission [Not Recovered/Not Resolved]
  - Device malfunction [Unknown]
  - Wrong technique in product usage process [Not Recovered/Not Resolved]
  - Incorrect disposal of product [Not Recovered/Not Resolved]
  - Injection site pain [Unknown]
  - Needle issue [Not Recovered/Not Resolved]
